FAERS Safety Report 19854089 (Version 1)
Quarter: 2021Q3

REPORT INFORMATION
  Report Type: Spontaneous
  Country: US (occurrence: US)
  Receive Date: 20210920
  Receipt Date: 20210920
  Transmission Date: 20211014
  Serious: No
  Sender: FDA-Public Use
  Company Number: US-DRREDDYS-SPO/USA/21/0140138

PATIENT
  Age: 73 Year
  Sex: Female

DRUGS (1)
  1. DIVALPROEX SODIUM EXTENDED RELEASE TABLETS 500 MG [Suspect]
     Active Substance: DIVALPROEX SODIUM
     Indication: SLEEP DISORDER
     Dosage: 1 TABLET AT BEDTIME

REACTIONS (4)
  - Drug ineffective [Unknown]
  - Insomnia [Unknown]
  - Product use in unapproved indication [Unknown]
  - Product quality issue [Unknown]
